FAERS Safety Report 15310101 (Version 1)
Quarter: 2018Q3

REPORT INFORMATION
  Report Type: Spontaneous
  Country: US (occurrence: US)
  Receive Date: 20180813
  Receipt Date: 20180813
  Transmission Date: 20181010
  Serious: Yes (Hospitalization)
  Sender: FDA-Public Use
  Company Number: None

PATIENT
  Age: 61 Year
  Sex: Male

DRUGS (6)
  1. DILTIAZEM. [Concomitant]
     Active Substance: DILTIAZEM
     Dates: start: 20160408
  2. LISINPRIL [Concomitant]
     Dates: start: 20160408
  3. TALTZ [Suspect]
     Active Substance: IXEKIZUMAB
     Indication: PSORIASIS
     Dosage: ?          OTHER FREQUENCY:EVERY 4 WEEKS;?
     Route: 058
     Dates: start: 20171006, end: 20171206
  4. CRESTOR [Concomitant]
     Active Substance: ROSUVASTATIN CALCIUM
     Dates: start: 20160408
  5. LIPITOR [Concomitant]
     Active Substance: ATORVASTATIN CALCIUM
  6. METFORMIN [Concomitant]
     Active Substance: METFORMIN HYDROCHLORIDE
     Dates: start: 20160408

REACTIONS (7)
  - Pulmonary oedema [None]
  - Respiratory arrest [None]
  - Psoriasis [None]
  - Diarrhoea [None]
  - Nausea [None]
  - Pneumonia [None]
  - Headache [None]

NARRATIVE: CASE EVENT DATE: 20180101
